FAERS Safety Report 24424596 (Version 1)
Quarter: 2024Q4

REPORT INFORMATION
  Report Type: Spontaneous
  Country: IT (occurrence: IT)
  Receive Date: 20241010
  Receipt Date: 20241010
  Transmission Date: 20250114
  Serious: Yes (Hospitalization)
  Sender: JOHNSON AND JOHNSON
  Company Number: IT-JNJFOC-20241011267

PATIENT
  Sex: Male

DRUGS (2)
  1. VERMOX [Suspect]
     Active Substance: MEBENDAZOLE
     Indication: Diverticulum intestinal
     Route: 065
  2. VERMOX [Suspect]
     Active Substance: MEBENDAZOLE
     Indication: Inflammation

REACTIONS (2)
  - Diverticulitis [Unknown]
  - Off label use [Unknown]
